FAERS Safety Report 4960588-9 (Version None)
Quarter: 2006Q2

REPORT INFORMATION
  Report Type: 
  Country: None (occurrence: None)
  Receive Date: 20060403
  Receipt Date: 20050711
  Transmission Date: 20061013
  Serious: Yes (Death, Disabling, Other)
  Sender: FDA-Public Use
  Company Number: US-MERCK-0507USA01470

PATIENT
  Age: 58 Year
  Sex: Male
  Weight: 89 kg

DRUGS (1)
  1. VIOXX [Suspect]
     Route: 048

REACTIONS (5)
  - CEREBROVASCULAR ACCIDENT [None]
  - DEATH [None]
  - MUSCLE DISORDER [None]
  - MYOCARDIAL INFARCTION [None]
  - POLYTRAUMATISM [None]
